FAERS Safety Report 8923040 (Version 2)
Quarter: 2012Q4

REPORT INFORMATION
  Report Type: 
  Country: US (occurrence: US)
  Receive Date: 20121123
  Receipt Date: 20121218
  Transmission Date: 20130627
  Serious: No
  Sender: FDA-Public Use
  Company Number: US-PFIZER INC-2012208532

PATIENT
  Age: 18 Year
  Sex: Female

DRUGS (15)
  1. MEDROXYPROGESTERONE ACETATE [Suspect]
     Indication: BIRTH CONTROL
     Dosage: 150 mg, every 3 months
     Dates: start: 201008
  2. HYDROXYZINE HYDROCHLORIDE [Concomitant]
     Dosage: 50 mg, every day at bedtime
  3. PULMICORT [Concomitant]
     Dosage: 1 puff 2 times every day
  4. VENTOLIN [Concomitant]
     Dosage: 2 puff every 4 -6 hours as needed
  5. ALPRAZOLAM [Concomitant]
     Dosage: 0.25 mg, 1x/day
     Route: 048
  6. XOPENEX [Concomitant]
     Dosage: 2 puff by inhalation every 6 hours
  7. NIZORAL [Concomitant]
     Dosage: three times a week
  8. SINGULAIR [Concomitant]
     Dosage: 10 mg, 1x/day
     Route: 048
  9. SPIRONOLACTONE [Concomitant]
     Indication: CARDIAC DISORDER
  10. DIGOXIN [Concomitant]
     Indication: CARDIAC DISORDER
  11. PRINIVIL [Concomitant]
     Indication: CARDIAC DISORDER
  12. LASIX [Concomitant]
     Indication: CARDIAC DISORDER
  13. METOPROLOL TARTRATE [Concomitant]
     Dosage: 25 mg, 2x/day
  14. COQ-10 [Concomitant]
     Dosage: 100 mg, 1x/day
     Route: 048
  15. HALFPRIN [Concomitant]
     Dosage: 81 mg, 1x/day
     Route: 048

REACTIONS (4)
  - Poor quality drug administered [Unknown]
  - Incorrect dose administered [Unknown]
  - Ear pain [Unknown]
  - Ear discomfort [Unknown]
